FAERS Safety Report 7338336-7 (Version None)
Quarter: 2011Q1

REPORT INFORMATION
  Report Type: 
  Country: None (occurrence: None)
  Receive Date: 20110308
  Receipt Date: 20110224
  Transmission Date: 20110831
  Serious: Yes (Other)
  Sender: FDA-Public Use
  Company Number: US-BAYER-2011-018458

PATIENT
  Sex: Female

DRUGS (1)
  1. MAGNEVIST [Suspect]
     Indication: NUCLEAR MAGNETIC RESONANCE IMAGING
     Dosage: UNK
     Route: 042
     Dates: start: 20110222, end: 20110222

REACTIONS (4)
  - NASAL CONGESTION [None]
  - SPEECH DISORDER [None]
  - THROAT TIGHTNESS [None]
  - BLOOD PRESSURE INCREASED [None]
